FAERS Safety Report 7631960-3 (Version None)
Quarter: 2011Q3

REPORT INFORMATION
  Report Type: 
  Country: None (occurrence: None)
  Receive Date: 20110725
  Receipt Date: 20110516
  Transmission Date: 20111222
  Serious: Yes (Other)
  Sender: FDA-Public Use
  Company Number: US-BRISTOL-MYERS SQUIBB COMPANY-15748429

PATIENT
  Age: 77 Year
  Sex: Female
  Weight: 70 kg

DRUGS (3)
  1. WARFARIN SODIUM [Suspect]
  2. COUMADIN [Suspect]
     Indication: ATRIAL FIBRILLATION
     Dosage: 1 DF = 5 MG ON MONDAY, WEDNESDAY AND FRIDAY, AND 2.5 MG ON REST OF THE DAYS OF THE WEEK
  3. COUMADIN [Suspect]
     Indication: MITRAL VALVE PROLAPSE
     Dosage: 1 DF = 5 MG ON MONDAY, WEDNESDAY AND FRIDAY, AND 2.5 MG ON REST OF THE DAYS OF THE WEEK

REACTIONS (2)
  - HAEMORRHAGE [None]
  - CONTUSION [None]
